FAERS Safety Report 9881395 (Version 2)
Quarter: 2014Q1

REPORT INFORMATION
  Report Type: Spontaneous
  Country: CA (occurrence: CA)
  Receive Date: 20140207
  Receipt Date: 20140207
  Transmission Date: 20141002
  Serious: Yes (Other)
  Sender: FDA-Public Use
  Company Number: CA-PFIZER INC-2014026921

PATIENT
  Age: 50 Year
  Sex: Male
  Weight: 102 kg

DRUGS (2)
  1. PRISTIQ [Suspect]
     Indication: POST-TRAUMATIC STRESS DISORDER
     Dosage: 50 MG, DAILY
     Route: 048
     Dates: start: 20131212, end: 20140116
  2. DESYREL [Concomitant]
     Indication: SLEEP APNOEA SYNDROME
     Dosage: 25-50 MG AT BEDTIME
     Route: 048
     Dates: start: 20131212, end: 20140116

REACTIONS (3)
  - Irritability [Unknown]
  - Flashback [Unknown]
  - Drug ineffective [Unknown]
